FAERS Safety Report 25823863 (Version 1)
Quarter: 2025Q3

REPORT INFORMATION
  Report Type: Spontaneous
  Country: US (occurrence: US)
  Receive Date: 20250919
  Receipt Date: 20250919
  Transmission Date: 20251021
  Serious: No
  Sender: ANI
  Company Number: US-ANIPHARMA-2025-US-025022

PATIENT
  Sex: Female
  Weight: 88 kg

DRUGS (1)
  1. CORTICOTROPIN [Suspect]
     Active Substance: CORTICOTROPIN
     Indication: Iridocyclitis
     Route: 058

REACTIONS (4)
  - Headache [Unknown]
  - Eye disorder [Unknown]
  - Hyperhidrosis [Unknown]
  - Drug ineffective [Unknown]
